FAERS Safety Report 9235080 (Version 1)
Quarter: 2013Q2

REPORT INFORMATION
  Report Type: Spontaneous
  Country: US (occurrence: US)
  Receive Date: 20130416
  Receipt Date: 20130416
  Transmission Date: 20140414
  Serious: Yes (Other)
  Sender: FDA-Public Use
  Company Number: US-TEVA-353639USA

PATIENT
  Age: 35 Year
  Sex: Female
  Weight: 80.36 kg

DRUGS (1)
  1. PARAGARD 380A [Suspect]
     Indication: CONTRACEPTION
     Route: 015
     Dates: start: 20091102, end: 20120812

REACTIONS (3)
  - Caesarean section [Unknown]
  - Drug ineffective [Unknown]
  - Live birth [Recovered/Resolved]
